FAERS Safety Report 5987139-4 (Version None)
Quarter: 2008Q4

REPORT INFORMATION
  Report Type: 
  Country: None (occurrence: None)
  Receive Date: 20081203
  Receipt Date: 20081120
  Transmission Date: 20090506
  Serious: Yes (Hospitalization)
  Sender: FDA-Public Use
  Company Number: 2008AL011913

PATIENT
  Age: 56 Year
  Sex: Male
  Weight: 75 kg

DRUGS (1)
  1. FEVERALL [Suspect]
     Indication: ARTHRALGIA
     Dosage: 1000 MG;BID;UNK

REACTIONS (3)
  - BIOPSY LIVER ABNORMAL [None]
  - DRUG CLEARANCE INCREASED [None]
  - HEPATITIS CHOLESTATIC [None]
